FAERS Safety Report 5523787-3 (Version None)
Quarter: 2007Q4

REPORT INFORMATION
  Report Type: 
  Country: None (occurrence: None)
  Receive Date: 20071121
  Receipt Date: 20071113
  Transmission Date: 20080405
  Serious: Yes (Death)
  Sender: FDA-Public Use
  Company Number: JP-JNJFOC-20070801668

PATIENT
  Sex: Male
  Weight: 55 kg

DRUGS (18)
  1. REMICADE [Suspect]
     Route: 042
  2. REMICADE [Suspect]
     Route: 042
  3. REMICADE [Suspect]
     Route: 042
  4. REMICADE [Suspect]
     Route: 042
  5. REMICADE [Suspect]
     Route: 042
  6. REMICADE [Suspect]
     Route: 042
  7. REMICADE [Suspect]
     Route: 042
  8. REMICADE [Suspect]
     Route: 042
  9. REMICADE [Suspect]
     Route: 042
  10. REMICADE [Suspect]
     Route: 042
  11. REMICADE [Suspect]
     Route: 042
  12. REMICADE [Suspect]
     Route: 042
  13. REMICADE [Suspect]
     Route: 042
  14. REMICADE [Suspect]
     Indication: RHEUMATOID ARTHRITIS
     Route: 042
  15. ISCOTIN [Concomitant]
     Indication: ANTIBIOTIC PROPHYLAXIS
     Route: 048
  16. FOSAMAC [Concomitant]
     Route: 048
  17. BERIZYM [Concomitant]
     Route: 048
  18. ADRENAL HORMONE PREPARATION [Concomitant]
     Indication: RHEUMATOID ARTHRITIS

REACTIONS (1)
  - GASTRIC CANCER RECURRENT [None]
